FAERS Safety Report 9889994 (Version 1)
Quarter: 2014Q1

REPORT INFORMATION
  Report Type: Spontaneous
  Country: US (occurrence: US)
  Receive Date: 20140212
  Receipt Date: 20140212
  Transmission Date: 20141002
  Serious: No
  Sender: FDA-Public Use
  Company Number: US-BIOGENIDEC-2014BI010154

PATIENT
  Sex: Female

DRUGS (11)
  1. TECFIDERA [Suspect]
     Indication: MULTIPLE SCLEROSIS
     Route: 048
  2. AMPYRA [Concomitant]
  3. CALCIUM 500 +D [Concomitant]
  4. COLACE [Concomitant]
  5. FISH OIL [Concomitant]
  6. LAMICTAL [Concomitant]
  7. PRIMIDONE [Concomitant]
  8. PROBIOTIC ACIDOPHILUS BEADS [Concomitant]
  9. VITAMIN B COMPLEX [Concomitant]
  10. VITAMIN D [Concomitant]
  11. CELEXA [Concomitant]

REACTIONS (1)
  - Disease progression [Unknown]
